FAERS Safety Report 6292417-8 (Version None)
Quarter: 2009Q3

REPORT INFORMATION
  Report Type: 
  Country: None (occurrence: None)
  Receive Date: 20090731
  Receipt Date: 20090721
  Transmission Date: 20100115
  Serious: Yes (Other)
  Sender: FDA-Public Use
  Company Number: US-BAYER-200923114GPV

PATIENT
  Age: 29 Year
  Sex: Female
  Weight: 85 kg

DRUGS (7)
  1. ALEMTUZUMAB [Suspect]
     Indication: MULTIPLE SCLEROSIS
     Route: 042
     Dates: start: 20081103, end: 20081107
  2. CHLORAMPHENAMINE [Concomitant]
     Dates: start: 20081103
  3. EURAX [Concomitant]
     Route: 061
     Dates: start: 20081107
  4. BECOTIDE [Concomitant]
     Route: 065
  5. VENTOLIN [Concomitant]
     Route: 065
  6. BETAMETHASONE VALERATE [Concomitant]
     Route: 065
  7. NICOTINE [Concomitant]
     Route: 062
     Dates: start: 20081110

REACTIONS (1)
  - BREAST MASS [None]
